FAERS Safety Report 5134461-X (Version None)
Quarter: 2006Q4

REPORT INFORMATION
  Report Type: 
  Country: None (occurrence: None)
  Receive Date: 20061025
  Receipt Date: 20061018
  Transmission Date: 20070319
  Serious: Yes (Other)
  Sender: FDA-Public Use
  Company Number: JP-AVENTIS-200613279JP

PATIENT
  Age: 36 Year
  Sex: Female

DRUGS (1)
  1. ALLEGRA [Suspect]
     Route: 048

REACTIONS (3)
  - GAMMA-GLUTAMYLTRANSFERASE INCREASED [None]
  - ILL-DEFINED DISORDER [None]
  - PRODUCTIVE COUGH [None]
